FAERS Safety Report 9663636 (Version 1)
Quarter: 2013Q4

REPORT INFORMATION
  Report Type: Spontaneous
  Country: US (occurrence: US)
  Receive Date: 20131101
  Receipt Date: 20131101
  Transmission Date: 20140711
  Serious: Yes (Other)
  Sender: FDA-Public Use
  Company Number: US-ENDO PHARMACEUTICALS INC.-CLOZ20110001

PATIENT
  Age: 37 Year
  Sex: Female

DRUGS (6)
  1. CLONAZEPAM 2MG [Suspect]
     Indication: ANXIETY
     Dosage: 6 MG
     Route: 048
     Dates: start: 201007
  2. CLONAZEPAM 2MG [Suspect]
     Indication: IRRITABILITY
  3. CLONAZEPAM 2MG [Suspect]
     Indication: TARDIVE DYSKINESIA
  4. XENAZINE [Suspect]
     Indication: TARDIVE DYSKINESIA
     Route: 048
     Dates: start: 201011
  5. XENAZINE [Suspect]
     Indication: IRRITABILITY
  6. DEPAKOTE [Concomitant]
     Indication: PRODUCT USED FOR UNKNOWN INDICATION
     Dosage: UNK

REACTIONS (4)
  - Suicidal ideation [Unknown]
  - Aggression [Unknown]
  - Drug ineffective [Unknown]
  - Crying [Unknown]
